FAERS Safety Report 9158196 (Version 2)
Quarter: 2013Q2

REPORT INFORMATION
  Report Type: Report from Study
  Country: CA (occurrence: CA)
  Receive Date: 20130312
  Receipt Date: 20130402
  Transmission Date: 20140414
  Serious: Yes (Hospitalization)
  Sender: FDA-Public Use
  Company Number: CA-ROCHE-1199932

PATIENT
  Age: 54 Year
  Sex: Female
  Weight: 61.2 kg

DRUGS (8)
  1. RITUXAN [Suspect]
     Indication: RHEUMATOID ARTHRITIS
     Route: 042
     Dates: start: 20091208
  2. DIPHENHYDRAMINE HCL [Concomitant]
     Indication: PREMEDICATION
     Dosage: DRUG INDICATION: RITUXAN PREMEDICATION
     Route: 048
     Dates: start: 20091208
  3. ACETAMINOPHEN [Concomitant]
     Indication: PREMEDICATION
     Dosage: DRUG INDICATION: RITUXAN PREMEDICATION
     Route: 048
     Dates: start: 20091208
  4. METHYLPREDNISOLONE [Concomitant]
     Indication: PREMEDICATION
     Dosage: DRUG INDICATION: RITUXAN PREMEDICATION
     Route: 042
     Dates: start: 20091208
  5. METHOTREXATE [Concomitant]
  6. FOLIC ACID [Concomitant]
  7. ACTONEL [Concomitant]
  8. APO-PREDNISONE [Concomitant]

REACTIONS (1)
  - Pulmonary mass [Recovered/Resolved]
